FAERS Safety Report 5167975-7 (Version None)
Quarter: 2006Q4

REPORT INFORMATION
  Report Type: 
  Country: None (occurrence: None)
  Receive Date: 20061208
  Receipt Date: 20051214
  Transmission Date: 20070319
  Serious: No
  Sender: FDA-Public Use
  Company Number: US-GLAXOSMITHKLINE-A0585873A

PATIENT
  Age: 72 Year
  Sex: Male

DRUGS (2)
  1. AVANDAMET [Suspect]
     Dosage: 1TAB PER DAY
     Route: 048
     Dates: start: 20030101
  2. AMARYL [Concomitant]

REACTIONS (1)
  - WEIGHT INCREASED [None]
